FAERS Safety Report 5775446-X (Version None)
Quarter: 2008Q2

REPORT INFORMATION
  Report Type: 
  Country: None (occurrence: None)
  Receive Date: 20080612
  Receipt Date: 20080530
  Transmission Date: 20081010
  Serious: Yes (Hospitalization)
  Sender: FDA-Public Use
  Company Number: 168797

PATIENT
  Age: 9 Year
  Sex: Female

DRUGS (1)
  1. AVONEX [Suspect]
     Indication: MULTIPLE SCLEROSIS
     Dosage: 22 UG;QW;IM
     Route: 030
     Dates: start: 20021101

REACTIONS (2)
  - CONVULSION [None]
  - FACIAL PALSY [None]
